FAERS Safety Report 21715621 (Version 4)
Quarter: 2023Q1

REPORT INFORMATION
  Report Type: Report from Study
  Country: US (occurrence: US)
  Receive Date: 20221212
  Receipt Date: 20230322
  Transmission Date: 20230417
  Serious: No
  Sender: FDA-Public Use
  Company Number: US-ABBVIE-4232169

PATIENT
  Sex: Female
  Weight: 69.853 kg

DRUGS (1)
  1. ORILISSA [Suspect]
     Active Substance: ELAGOLIX SODIUM
     Indication: Endometriosis
     Dosage: FORM STRENGTH: 150 MG
     Route: 048
     Dates: start: 20221024, end: 20221128

REACTIONS (1)
  - Rectal haemorrhage [Unknown]
